FAERS Safety Report 8342873-6 (Version None)
Quarter: 2012Q2

REPORT INFORMATION
  Report Type: 
  Country: None (occurrence: None)
  Receive Date: 20120508
  Receipt Date: 20120502
  Transmission Date: 20120825
  Serious: No
  Sender: FDA-Public Use
  Company Number: US-PFIZER INC-2012109766

PATIENT
  Sex: Female
  Weight: 63.492 kg

DRUGS (1)
  1. IBUPROFEN [Suspect]
     Indication: PAIN
     Dosage: 600 MG, EVERY 6 HOURS AS NEEDED
     Dates: end: 20080128

REACTIONS (2)
  - NAUSEA [None]
  - DRUG INEFFECTIVE [None]
